FAERS Safety Report 4755904-7 (Version None)
Quarter: 2005Q3

REPORT INFORMATION
  Report Type: 
  Country: None (occurrence: None)
  Receive Date: 20050826
  Receipt Date: 20050215
  Transmission Date: 20060218
  Serious: Yes (Hospitalization, Other)
  Sender: FDA-Public Use
  Company Number: USA-2003-0010068

PATIENT
  Age: 39 Year
  Sex: Female

DRUGS (6)
  1. OXYCONTIN [Suspect]
     Dosage: 0 MG, SEE TEXT
  2. COCAINE (COCAINE) [Suspect]
  3. PERCOCET [Suspect]
  4. AMBIEN [Concomitant]
  5. VALIUM [Concomitant]
  6. XANAX [Concomitant]

REACTIONS (11)
  - ACCIDENTAL OVERDOSE [None]
  - ANTISOCIAL BEHAVIOUR [None]
  - DRUG DEPENDENCE [None]
  - DYSARTHRIA [None]
  - EUPHORIC MOOD [None]
  - GAIT DISTURBANCE [None]
  - ILL-DEFINED DISORDER [None]
  - MYDRIASIS [None]
  - POLYSUBSTANCE ABUSE [None]
  - RHINORRHOEA [None]
  - TACHYCARDIA [None]
